FAERS Safety Report 6197968-2 (Version None)
Quarter: 2009Q2

REPORT INFORMATION
  Report Type: 
  Country: None (occurrence: None)
  Receive Date: 20090521
  Receipt Date: 20090513
  Transmission Date: 20091009
  Serious: Yes (Hospitalization)
  Sender: FDA-Public Use
  Company Number: B0574996A

PATIENT
  Age: 30 Year
  Sex: Male

DRUGS (3)
  1. AUGMENTIN '125' [Suspect]
     Indication: ORTHOPEDIC PROCEDURE
     Route: 042
     Dates: start: 20090413, end: 20090413
  2. MARCAINE [Concomitant]
  3. FENTANYL [Concomitant]

REACTIONS (2)
  - ALTERED STATE OF CONSCIOUSNESS [None]
  - MIOSIS [None]
